FAERS Safety Report 24140971 (Version 1)
Quarter: 2024Q3

REPORT INFORMATION
  Report Type: Spontaneous
  Country: US (occurrence: US)
  Receive Date: 20240726
  Receipt Date: 20240726
  Transmission Date: 20241017
  Serious: Yes (Hospitalization)
  Sender: ROCHE
  Company Number: US-ROCHE-10000036679

PATIENT
  Sex: Female

DRUGS (2)
  1. XOLAIR PFS [Suspect]
     Active Substance: OMALIZUMAB
     Indication: Urticaria
     Dosage: ONGOING, STRENGTH:300MG/2ML
     Route: 058
     Dates: start: 20240521
  2. XOLAIR PFS [Suspect]
     Active Substance: OMALIZUMAB

REACTIONS (1)
  - Urticaria [Unknown]
